FAERS Safety Report 4311610-4 (Version None)
Quarter: 2004Q1

REPORT INFORMATION
  Report Type: 
  Country: None (occurrence: None)
  Receive Date: 20040304
  Receipt Date: 20030923
  Transmission Date: 20041129
  Serious: Yes (Other)
  Sender: FDA-Public Use
  Company Number: US-ROCHE-347835

PATIENT
  Age: 50 Year
  Sex: Female
  Weight: 73.5 kg

DRUGS (5)
  1. PEGASYS [Suspect]
     Indication: HEPATITIS C
     Route: 058
     Dates: start: 20030907
  2. CALCIUM NOS [Concomitant]
     Route: 048
  3. PROPANOL [Concomitant]
     Route: 048
  4. COVERA-HS [Concomitant]
     Route: 048
  5. COPEGUS [Suspect]
     Indication: DRUG USE FOR UNKNOWN INDICATION
     Route: 065

REACTIONS (16)
  - ALOPECIA [None]
  - ANAEMIA [None]
  - ASCITES [None]
  - DYSPNOEA [None]
  - ELECTROLYTE IMBALANCE [None]
  - HEART RATE IRREGULAR [None]
  - HYPOGLYCAEMIA [None]
  - HYPOKALAEMIA [None]
  - HYPONATRAEMIA [None]
  - JOINT SWELLING [None]
  - OEDEMA [None]
  - ORAL FUNGAL INFECTION [None]
  - PLATELET COUNT DECREASED [None]
  - PRURITUS [None]
  - RASH [None]
  - WEIGHT INCREASED [None]
